FAERS Safety Report 4343616-3 (Version None)
Quarter: 2004Q2

REPORT INFORMATION
  Report Type: 
  Country: None (occurrence: None)
  Receive Date: 20040419
  Receipt Date: 20040407
  Transmission Date: 20050107
  Serious: Yes (Death, Hospitalization)
  Sender: FDA-Public Use
  Company Number: 200403604

PATIENT
  Age: 20 Year
  Sex: Female

DRUGS (2)
  1. MOTRIN [Suspect]
     Indication: ATTENTION-SEEKING BEHAVIOUR
     Dosage: ^SEVERAL^
  2. ASPIRIN [Suspect]
     Indication: ATTENTION-SEEKING BEHAVIOUR
     Dosage: 100-200 TABLETS

REACTIONS (2)
  - COMPLETED SUICIDE [None]
  - OVERDOSE [None]
